FAERS Safety Report 9130362 (Version 1)
Quarter: 2013Q1

REPORT INFORMATION
  Report Type: Spontaneous
  Country: FR (occurrence: FR)
  Receive Date: 20130228
  Receipt Date: 20130228
  Transmission Date: 20140127
  Serious: Yes (Hospitalization, Other)
  Sender: FDA-Public Use
  Company Number: FR-PFIZER INC-2013070817

PATIENT
  Age: 63 Year
  Sex: Male

DRUGS (6)
  1. TRIATEC [Suspect]
     Indication: PRODUCT USED FOR UNKNOWN INDICATION
     Dosage: UNK
     Route: 048
     Dates: start: 201212, end: 20130125
  2. LASILIX [Suspect]
     Indication: PRODUCT USED FOR UNKNOWN INDICATION
     Dosage: UNK
     Route: 048
     Dates: start: 20121224, end: 20130125
  3. CLAMOXYL [Suspect]
     Indication: PRODUCT USED FOR UNKNOWN INDICATION
     Dosage: UNK
     Route: 048
     Dates: start: 20121229, end: 20130125
  4. MOTILIUM [Suspect]
     Indication: PRODUCT USED FOR UNKNOWN INDICATION
     Dosage: UNK
     Route: 048
     Dates: start: 201212, end: 20130125
  5. BISOPROLOL [Suspect]
     Indication: PRODUCT USED FOR UNKNOWN INDICATION
     Dosage: UNK
     Route: 048
     Dates: start: 20121229, end: 20130125
  6. KARDEGIC [Concomitant]
     Dosage: UNK
     Dates: start: 201212

REACTIONS (8)
  - Stevens-Johnson syndrome [Recovering/Resolving]
  - Haematuria [Unknown]
  - Leukocyturia [Unknown]
  - Anaemia [Unknown]
  - Renal failure [Unknown]
  - Cerebellar haematoma [Unknown]
  - Pleural effusion [Unknown]
  - Splenomegaly [Unknown]
